FAERS Safety Report 7290152-0 (Version None)
Quarter: 2011Q1

REPORT INFORMATION
  Report Type: 
  Country: None (occurrence: None)
  Receive Date: 20110209
  Receipt Date: 20110209
  Transmission Date: 20110831
  Serious: Yes (Hospitalization)
  Sender: FDA-Public Use
  Company Number: None

PATIENT
  Age: 11 Year
  Weight: 36.9 kg

DRUGS (2)
  1. PRIVIGEN [Suspect]
     Indication: IMMUNODEFICIENCY COMMON VARIABLE
     Dosage: 34 G ONCE IV
     Route: 042
     Dates: start: 20110204, end: 20110204
  2. PRIVIGEN [Suspect]

REACTIONS (2)
  - VOMITING [None]
  - NAUSEA [None]
